FAERS Safety Report 25240371 (Version 2)
Quarter: 2025Q2

REPORT INFORMATION
  Report Type: Report from Study
  Country: US (occurrence: US)
  Receive Date: 20250425
  Receipt Date: 20250506
  Transmission Date: 20250716
  Serious: Yes (Disabling)
  Sender: GILEAD
  Company Number: US-GILEAD-2025-0711501

PATIENT
  Age: 66 Year
  Sex: Male

DRUGS (2)
  1. BICTEGRAVIR\EMTRICITABINE\TENOFOVIR ALAFENAMIDE [Suspect]
     Active Substance: BICTEGRAVIR\EMTRICITABINE\TENOFOVIR ALAFENAMIDE
     Indication: HIV infection
     Route: 065
     Dates: start: 20230501, end: 20250405
  2. BICTEGRAVIR\EMTRICITABINE\TENOFOVIR ALAFENAMIDE [Suspect]
     Active Substance: BICTEGRAVIR\EMTRICITABINE\TENOFOVIR ALAFENAMIDE
     Indication: Hepatitis
     Route: 065
     Dates: start: 20250405

REACTIONS (8)
  - Lethargy [Unknown]
  - Decreased appetite [Unknown]
  - Hypersomnia [Unknown]
  - Product dose omission issue [Unknown]
  - Joint swelling [Unknown]
  - Chromaturia [Unknown]
  - Gait disturbance [Unknown]
  - Liver disorder [Unknown]

NARRATIVE: CASE EVENT DATE: 20230501
